FAERS Safety Report 25609729 (Version 1)
Quarter: 2025Q3

REPORT INFORMATION
  Report Type: Spontaneous
  Country: US (occurrence: US)
  Receive Date: 20250728
  Receipt Date: 20250728
  Transmission Date: 20251021
  Serious: Yes (Other)
  Sender: SPECGX
  Company Number: US-SPECGX-T202501259

PATIENT
  Sex: Female

DRUGS (1)
  1. METHADONE [Suspect]
     Active Substance: METHADONE HYDROCHLORIDE
     Indication: Drug use disorder
     Route: 065

REACTIONS (4)
  - Road traffic accident [Unknown]
  - Foetal death [Unknown]
  - Premature labour [Unknown]
  - Exposure during pregnancy [Unknown]
